FAERS Safety Report 9269892 (Version 1)
Quarter: 2013Q2

REPORT INFORMATION
  Report Type: Spontaneous
  Country: SE (occurrence: SE)
  Receive Date: 20130503
  Receipt Date: 20130503
  Transmission Date: 20140414
  Serious: Yes (Other)
  Sender: FDA-Public Use
  Company Number: SE-JNJFOC-20130411076

PATIENT
  Age: 25 Year
  Sex: Male

DRUGS (25)
  1. XEPLION [Suspect]
     Indication: SCHIZOPHRENIA
     Route: 030
     Dates: start: 201211
  2. XEPLION [Suspect]
     Indication: ANXIETY
     Route: 030
     Dates: start: 201211
  3. XEPLION [Suspect]
     Indication: DEPRESSION
     Route: 030
     Dates: start: 201211
  4. HALDOL [Suspect]
     Indication: SCHIZOPHRENIA
     Route: 048
  5. HALDOL [Suspect]
     Indication: DEPRESSION
     Route: 048
  6. HALDOL [Suspect]
     Indication: ANXIETY
     Route: 048
  7. HALDOL [Suspect]
     Indication: SCHIZOPHRENIA
     Route: 030
  8. HALDOL [Suspect]
     Indication: DEPRESSION
     Route: 030
  9. HALDOL [Suspect]
     Indication: ANXIETY
     Route: 030
  10. RISPERDAL [Suspect]
     Indication: SCHIZOPHRENIA
     Route: 048
  11. RISPERDAL [Suspect]
     Indication: DEPRESSION
     Route: 048
  12. RISPERDAL [Suspect]
     Indication: ANXIETY
     Route: 048
  13. RISPERDAL CONSTA [Suspect]
     Indication: SCHIZOPHRENIA
     Route: 030
  14. RISPERDAL CONSTA [Suspect]
     Indication: DEPRESSION
     Route: 030
  15. RISPERDAL CONSTA [Suspect]
     Indication: ANXIETY
     Route: 030
  16. ABILIFY [Suspect]
     Indication: SCHIZOPHRENIA
     Route: 065
  17. ABILIFY [Suspect]
     Indication: ANXIETY
     Route: 065
  18. ABILIFY [Suspect]
     Indication: DEPRESSION
     Route: 065
  19. CISORDINOL [Suspect]
     Indication: SCHIZOPHRENIA
     Route: 065
  20. CISORDINOL [Suspect]
     Indication: ANXIETY
     Route: 065
  21. CISORDINOL [Suspect]
     Indication: DEPRESSION
     Route: 065
  22. TRILAFON [Suspect]
     Indication: SCHIZOPHRENIA
     Route: 065
  23. TRILAFON [Suspect]
     Indication: ANXIETY
     Route: 065
  24. TRILAFON [Suspect]
     Indication: DEPRESSION
     Route: 065
  25. CIPRALEX [Suspect]
     Indication: DEPRESSION
     Route: 065

REACTIONS (8)
  - Suicidal ideation [Unknown]
  - Weight increased [Unknown]
  - Increased appetite [Unknown]
  - Sluggishness [Recovering/Resolving]
  - Blunted affect [Recovering/Resolving]
  - General physical condition abnormal [Recovering/Resolving]
  - Hypersomnia [Recovering/Resolving]
  - Laziness [Recovering/Resolving]
